FAERS Safety Report 15103051 (Version 3)
Quarter: 2018Q3

REPORT INFORMATION
  Report Type: Spontaneous
  Country: US (occurrence: US)
  Receive Date: 20180703
  Receipt Date: 20180830
  Transmission Date: 20181010
  Serious: Yes (Death, Other)
  Sender: FDA-Public Use
  Company Number: US-ROCHE-2147554

PATIENT
  Age: 71 Year
  Sex: Female
  Weight: 68.7 kg

DRUGS (7)
  1. VALCYTE [Suspect]
     Active Substance: VALGANCICLOVIR HYDROCHLORIDE
     Indication: PRODUCT USED FOR UNKNOWN INDICATION
     Route: 065
     Dates: start: 20180504
  2. INCB039110 [Suspect]
     Active Substance: INVESTIGATIONAL PRODUCT
     Route: 048
     Dates: start: 20180515, end: 20180517
  3. PREDNISONE. [Suspect]
     Active Substance: PREDNISONE
     Route: 048
     Dates: start: 20180503, end: 20180510
  4. PREDNISONE. [Suspect]
     Active Substance: PREDNISONE
     Indication: GRAFT VERSUS HOST DISEASE
     Route: 048
     Dates: start: 20180426, end: 20180502
  5. TACROLIMUS. [Suspect]
     Active Substance: TACROLIMUS
     Indication: PRODUCT USED FOR UNKNOWN INDICATION
     Route: 065
     Dates: start: 20180512
  6. INCB039110 [Suspect]
     Active Substance: INVESTIGATIONAL PRODUCT
     Indication: GRAFT VERSUS HOST DISEASE
     Route: 048
     Dates: start: 20160421, end: 20180514
  7. PREDNISONE. [Suspect]
     Active Substance: PREDNISONE
     Route: 048
     Dates: start: 20180511

REACTIONS (6)
  - Fall [Unknown]
  - Electrocardiogram abnormal [Recovering/Resolving]
  - Haemorrhage intracranial [Fatal]
  - Muscular weakness [Not Recovered/Not Resolved]
  - Laceration [Recovering/Resolving]
  - Injury [Not Recovered/Not Resolved]

NARRATIVE: CASE EVENT DATE: 20180516
